FAERS Safety Report 21025437 (Version 7)
Quarter: 2024Q4

REPORT INFORMATION
  Report Type: Report from Study
  Country: BE (occurrence: BE)
  Receive Date: 20220630
  Receipt Date: 20241003
  Transmission Date: 20250115
  Serious: No
  Sender: ROCHE
  Company Number: BE-ROCHE-3126537

PATIENT
  Age: 46 Year
  Sex: Female
  Weight: 58.8 kg

DRUGS (29)
  1. OCRELIZUMAB [Suspect]
     Active Substance: OCRELIZUMAB
     Indication: Relapsing-remitting multiple sclerosis
     Route: 042
     Dates: start: 20200707
  2. OCRELIZUMAB [Suspect]
     Active Substance: OCRELIZUMAB
     Route: 042
     Dates: start: 20220218, end: 20220218
  3. OCRELIZUMAB [Suspect]
     Active Substance: OCRELIZUMAB
     Route: 042
     Dates: start: 20210205, end: 20210205
  4. OCRELIZUMAB [Suspect]
     Active Substance: OCRELIZUMAB
     Route: 042
     Dates: start: 20210813, end: 20210813
  5. OCRELIZUMAB [Suspect]
     Active Substance: OCRELIZUMAB
     Route: 042
     Dates: start: 20200821, end: 20200821
  6. OCRELIZUMAB [Suspect]
     Active Substance: OCRELIZUMAB
     Route: 042
     Dates: start: 20220826, end: 20220826
  7. OCRELIZUMAB [Suspect]
     Active Substance: OCRELIZUMAB
     Route: 042
     Dates: start: 20230303, end: 20230303
  8. OCRELIZUMAB [Suspect]
     Active Substance: OCRELIZUMAB
     Route: 042
     Dates: start: 20230912, end: 20230912
  9. OCRELIZUMAB [Suspect]
     Active Substance: OCRELIZUMAB
     Route: 042
     Dates: start: 20240315, end: 20240315
  10. OCRELIZUMAB [Suspect]
     Active Substance: OCRELIZUMAB
     Route: 042
     Dates: start: 20240927, end: 20240927
  11. LEVOTHYROXINE SODIUM [Concomitant]
     Active Substance: LEVOTHYROXINE SODIUM
     Dosage: FREQUENCY TEXT:EVERY OTHER DAY
     Route: 048
  12. LEVOTHYROXINE SODIUM [Concomitant]
     Active Substance: LEVOTHYROXINE SODIUM
     Dosage: FREQUENCY TEXT:EVERY OTHER DAY
     Route: 048
  13. OXYBUTYNIN CHLORIDE [Concomitant]
     Active Substance: OXYBUTYNIN CHLORIDE
     Route: 048
     Dates: start: 201906
  14. NITROFURANTOIN [Concomitant]
     Active Substance: NITROFURANTOIN
     Dosage: FREQUENCY TEXT:AS NEEDED
     Route: 048
     Dates: start: 202006
  15. DALFAMPRIDINE [Concomitant]
     Active Substance: DALFAMPRIDINE
     Route: 048
     Dates: start: 20201101
  16. SOLU-MEDROL [Concomitant]
     Active Substance: METHYLPREDNISOLONE SODIUM SUCCINATE
     Dosage: FREQUENCY TEXT:ONCE BEFORE THE INFUSION
     Route: 042
     Dates: start: 20220826, end: 20220826
  17. SOLU-MEDROL [Concomitant]
     Active Substance: METHYLPREDNISOLONE SODIUM SUCCINATE
     Dosage: FREQUENCY TEXT:ONCE BEFORE INFUSION
     Route: 042
     Dates: start: 20230303, end: 20230303
  18. SOLU-MEDROL [Concomitant]
     Active Substance: METHYLPREDNISOLONE SODIUM SUCCINATE
     Dosage: FREQUENCY TEXT:ONCE BEFORE INFUSION
     Route: 042
     Dates: start: 20230912, end: 20230912
  19. CETIRIZINE HYDROCHLORIDE [Concomitant]
     Active Substance: CETIRIZINE HYDROCHLORIDE
     Dosage: FREQUENCY TEXT:ONCE BEFORE INFUSION
     Route: 048
     Dates: start: 20230303, end: 20230303
  20. CETIRIZINE HYDROCHLORIDE [Concomitant]
     Active Substance: CETIRIZINE HYDROCHLORIDE
     Dosage: FREQUENCY TEXT:ONCE BEFORE INFUSION
     Route: 048
     Dates: start: 20220826, end: 20220826
  21. CETIRIZINE HYDROCHLORIDE [Concomitant]
     Active Substance: CETIRIZINE HYDROCHLORIDE
     Dosage: FREQUENCY TEXT:ONCE BEFORE INFUSION
     Route: 048
     Dates: start: 20230912, end: 20230912
  22. ACETAMINOPHEN [Concomitant]
     Active Substance: ACETAMINOPHEN
     Dosage: FREQUENCY TEXT:ONCE BEFORE INFUSION
     Route: 048
     Dates: start: 20220826, end: 20220826
  23. ACETAMINOPHEN [Concomitant]
     Active Substance: ACETAMINOPHEN
     Dosage: FREQUENCY TEXT:ONCE BEFORE INFUSION
     Route: 042
     Dates: start: 20230303, end: 20230303
  24. ACETAMINOPHEN [Concomitant]
     Active Substance: ACETAMINOPHEN
     Dosage: FREQUENCY TEXT:ONCE BEFORE INFUSION
     Route: 042
     Dates: start: 20230912, end: 20230912
  25. PANTOPRAZOLE [Concomitant]
     Active Substance: PANTOPRAZOLE
     Dosage: FREQUENCY TEXT:ONCE BEFORE INFUSION
     Route: 048
     Dates: start: 20220826, end: 20220826
  26. PANTOPRAZOLE [Concomitant]
     Active Substance: PANTOPRAZOLE
     Dosage: FREQUENCY TEXT:ONCE BEFORE INFUSION
     Route: 048
     Dates: start: 20230303, end: 20230303
  27. PANTOPRAZOLE [Concomitant]
     Active Substance: PANTOPRAZOLE
     Dosage: FREQUENCY TEXT:ONCE BEFORE INFUSION
     Route: 048
     Dates: start: 20230912, end: 20230912
  28. VAXIGRIPTETRA [Concomitant]
     Active Substance: INFLUENZA VIRUS VACCINE QUADRIVALENT TYPE A+B
     Route: 030
     Dates: start: 20221208, end: 20221208
  29. ULTRA K [Concomitant]
     Dates: start: 20230912

REACTIONS (1)
  - COVID-19 [Recovered/Resolved]

NARRATIVE: CASE EVENT DATE: 20220501
